FAERS Safety Report 8816912 (Version 1)
Quarter: 2012Q4

REPORT INFORMATION
  Report Type: Spontaneous
  Country: TW (occurrence: None)
  Receive Date: 20121002
  Receipt Date: 20121002
  Transmission Date: 20130627
  Serious: Yes (Hospitalization)
  Sender: FDA-Public Use
  Company Number: 139576

PATIENT
  Age: 34 Year
  Sex: Female

DRUGS (1)
  1. VINORELBINE TARTRATE [Suspect]
     Dosage: 25mg/m2 via iv infusion over 1 hour
     Route: 042

REACTIONS (1)
  - Posterior reversible encephalopathy syndrome [None]
